FAERS Safety Report 8521064-X (Version None)
Quarter: 2012Q3

REPORT INFORMATION
  Report Type: 
  Country: None (occurrence: None)
  Receive Date: 20120719
  Receipt Date: 20120712
  Transmission Date: 20120928
  Serious: Yes (Hospitalization)
  Sender: FDA-Public Use
  Company Number: GB-ROCHE-1046430

PATIENT
  Age: 53 Year
  Sex: Male
  Weight: 120.9 kg

DRUGS (5)
  1. OMEPRAZOLE [Concomitant]
     Dates: start: 20120223
  2. DOVOBET [Concomitant]
     Dosage: 1 APP
     Dates: start: 20110501
  3. PENICILLIN [Concomitant]
     Dates: start: 20111001
  4. VEMURAFENIB [Suspect]
     Indication: MALIGNANT MELANOMA
     Dosage: THE LAST DOSE PRIOR TO SAE:06/JUL/2012
     Route: 048
     Dates: start: 20120228
  5. BETNOVATE [Concomitant]
     Dosage: 3 APP
     Dates: start: 19900101

REACTIONS (2)
  - ANAEMIA [None]
  - PYREXIA [None]
